FAERS Safety Report 11977767 (Version 2)
Quarter: 2016Q1

REPORT INFORMATION
  Report Type: Spontaneous
  Country: FR (occurrence: FR)
  Receive Date: 20160129
  Receipt Date: 20160201
  Transmission Date: 20160526
  Serious: Yes (Hospitalization)
  Sender: FDA-Public Use
  Company Number: FR-PFIZER INC-2016044318

PATIENT
  Age: 30 Year
  Sex: Female

DRUGS (1)
  1. DOSTINEX [Suspect]
     Active Substance: CABERGOLINE
     Indication: LACTATION INHIBITION THERAPY
     Dosage: 1 MG, SINGLE
     Route: 048
     Dates: start: 20160111, end: 20160111

REACTIONS (5)
  - Headache [Recovered/Resolved]
  - Paraesthesia oral [Recovered/Resolved]
  - Hemianopia homonymous [Recovered/Resolved]
  - Malaise [Recovered/Resolved]
  - Product use issue [Unknown]

NARRATIVE: CASE EVENT DATE: 20160111
